FAERS Safety Report 21113202 (Version 1)
Quarter: 2022Q3

REPORT INFORMATION
  Report Type: Spontaneous
  Country: US (occurrence: US)
  Receive Date: 20220721
  Receipt Date: 20220721
  Transmission Date: 20221027
  Serious: Yes (Hospitalization)
  Sender: FDA-Public Use
  Company Number: US-FreseniusKabi-FK202209907

PATIENT
  Age: 50 Year
  Sex: Male
  Weight: 74.8 kg

DRUGS (2)
  1. CISPLATIN [Suspect]
     Active Substance: CISPLATIN
     Indication: Squamous cell carcinoma of head and neck
     Dosage: DAY 1, 22 AND 43 OF CRT PHASE
     Route: 041
     Dates: start: 20181015, end: 20181126
  2. AVELUMAB [Suspect]
     Active Substance: AVELUMAB
     Indication: Squamous cell carcinoma of head and neck
     Dosage: MSB0010718C;PLACEBO?DAY 1 OF LEAD-IN PHASE, DAYS 8, 25, AND 39 OF CRT PHASE, EVERY 2 WEEKS DURING MA
     Route: 041
     Dates: start: 20181008, end: 20190123

REACTIONS (1)
  - Laryngeal inflammation [Recovered/Resolved]

NARRATIVE: CASE EVENT DATE: 20190203
